FAERS Safety Report 17167144 (Version 1)
Quarter: 2019Q4

REPORT INFORMATION
  Report Type: Report from Study
  Country: GB (occurrence: GB)
  Receive Date: 20191218
  Receipt Date: 20191218
  Transmission Date: 20200122
  Serious: Yes (Other)
  Sender: FDA-Public Use
  Company Number: GB-AUROBINDO-AUR-APL-2019-105219

PATIENT
  Age: 47 Year

DRUGS (5)
  1. PREDNISOLONE. [Suspect]
     Active Substance: PREDNISOLONE
     Indication: IMMUNODEFICIENCY COMMON VARIABLE
     Dosage: UNK
     Route: 065
  2. RIBAVIRIN. [Suspect]
     Active Substance: RIBAVIRIN
     Indication: GASTROENTERITIS NOROVIRUS
     Dosage: 200 MILLIGRAM (IN THE MORNING)
     Route: 065
  3. RIBAVIRIN. [Suspect]
     Active Substance: RIBAVIRIN
     Indication: INFECTION
     Dosage: 400 MILLIGRAM (IN THE EVENINNG)
     Route: 065
  4. NITAZOXANIDE [Concomitant]
     Active Substance: NITAZOXANIDE
     Indication: GASTROENTERITIS NOROVIRUS
     Dosage: UNK
     Route: 065
  5. NITAZOXANIDE [Concomitant]
     Active Substance: NITAZOXANIDE
     Indication: INFECTION

REACTIONS (2)
  - Gastroenteritis norovirus [Recovered/Resolved]
  - Anaemia [Unknown]
